FAERS Safety Report 20187390 (Version 3)
Quarter: 2022Q1

REPORT INFORMATION
  Report Type: Report from Study
  Country: US (occurrence: US)
  Receive Date: 20211215
  Receipt Date: 20220113
  Transmission Date: 20220423
  Serious: Yes (Death)
  Sender: FDA-Public Use
  Company Number: US-JNJFOC-20211217503

PATIENT
  Age: 5 Decade
  Sex: Male

DRUGS (3)
  1. SPRAVATO [Suspect]
     Active Substance: ESKETAMINE
     Indication: Depression
     Dosage: 56 MG, 15 TOTAL DOSES
     Dates: start: 20200224, end: 20200601
  2. SPRAVATO [Suspect]
     Active Substance: ESKETAMINE
     Dosage: 84 MG, 17 TOTAL DOSES
     Dates: start: 20200604, end: 20200914
  3. SPRAVATO [Suspect]
     Active Substance: ESKETAMINE
     Dosage: 56 MG, 6 TOTAL DOSES
     Dates: start: 20210624, end: 20210715

REACTIONS (1)
  - Death [Fatal]
